FAERS Safety Report 9349853 (Version 5)
Quarter: 2013Q4

REPORT INFORMATION
  Report Type: Report from Study
  Country: FR (occurrence: FR)
  Receive Date: 20130614
  Receipt Date: 20131029
  Transmission Date: 20140711
  Serious: Yes (Hospitalization)
  Sender: FDA-Public Use
  Company Number: FR-ROCHE-1233946

PATIENT
  Age: 60 Year
  Sex: Female
  Weight: 53 kg

DRUGS (1)
  1. TRASTUZUMAB EMTANSINE [Suspect]
     Indication: BREAST CANCER
     Dosage: LAST DOSE PRIOR TO SAE : 16/MAY/2013?DATE OF LAST DOSE PRIOR TO SECOND EPISODE: 18/07/2013
     Route: 042
     Dates: start: 20130425

REACTIONS (1)
  - Intestinal obstruction [Recovered/Resolved]
